FAERS Safety Report 10041271 (Version 1)
Quarter: 2014Q1

REPORT INFORMATION
  Report Type: Spontaneous
  Country: US (occurrence: None)
  Receive Date: 20140326
  Receipt Date: 20140326
  Transmission Date: 20141002
  Serious: Yes (Life-Threatening, Hospitalization)
  Sender: FDA-Public Use
  Company Number: None

PATIENT
  Age: 47 Year
  Sex: Male
  Weight: 113.9 kg

DRUGS (1)
  1. CAFFEINE/ERGOTAMINE [Suspect]
     Indication: MIGRAINE
     Dosage: 1 DOSE PRN RECTAL
     Route: 054
     Dates: start: 20070228, end: 20131126

REACTIONS (1)
  - Acute myocardial infarction [None]
